FAERS Safety Report 18250142 (Version 1)
Quarter: 2020Q3

REPORT INFORMATION
  Report Type: Spontaneous
  Country: IR (occurrence: IR)
  Receive Date: 20200909
  Receipt Date: 20200909
  Transmission Date: 20201103
  Serious: Yes (Other)
  Sender: FDA-Public Use
  Company Number: IR-CASPER PHARMA LLC-2020CAS000454

PATIENT
  Age: 6 Year
  Sex: Male

DRUGS (1)
  1. PENICILLIN G BENZATHINE [Suspect]
     Active Substance: PENICILLIN G BENZATHINE
     Indication: PHARYNGITIS BACTERIAL
     Dosage: UNK
     Route: 030

REACTIONS (2)
  - Embolia cutis medicamentosa [Unknown]
  - Compartment syndrome [Unknown]
